FAERS Safety Report 7291632-4 (Version None)
Quarter: 2011Q1

REPORT INFORMATION
  Report Type: 
  Country: None (occurrence: None)
  Receive Date: 20110214
  Receipt Date: 20110207
  Transmission Date: 20110831
  Serious: Yes (Hospitalization, Other)
  Sender: FDA-Public Use
  Company Number: CA-PFIZER INC-2010018551

PATIENT
  Age: 33 Year
  Sex: Female
  Weight: 61.224 kg

DRUGS (4)
  1. GABAPENTIN [Concomitant]
     Dosage: UNK
  2. PAROXETINE [Concomitant]
     Dosage: UNK
  3. WARFARIN [Concomitant]
     Dosage: UNK
  4. CHAMPIX [Suspect]
     Indication: SMOKING CESSATION THERAPY
     Dosage: UNK

REACTIONS (7)
  - SUICIDAL IDEATION [None]
  - MOOD ALTERED [None]
  - DEPRESSION [None]
  - PAIN IN EXTREMITY [None]
  - HYPERSOMNIA [None]
  - FATIGUE [None]
  - WEIGHT INCREASED [None]
